FAERS Safety Report 5330732-2 (Version None)
Quarter: 2007Q2

REPORT INFORMATION
  Report Type: 
  Country: None (occurrence: None)
  Receive Date: 20070522
  Receipt Date: 20070516
  Transmission Date: 20071010
  Serious: Yes (Death, Other)
  Sender: FDA-Public Use
  Company Number: PHBS2007CN08169

PATIENT
  Age: 72 Year
  Sex: Female

DRUGS (6)
  1. PANCREATIN TRIPLE STRENGTH CAP [Concomitant]
     Indication: GASTROINTESTINAL DISORDER
     Dosage: 300 MG, TID
     Route: 048
     Dates: start: 20070319, end: 20070410
  2. CIMETIDINE HCL [Concomitant]
     Indication: VOMITING
     Dosage: 400 MG, BID
     Route: 042
     Dates: start: 20070319, end: 20070324
  3. AMINOFUSIN [Concomitant]
     Indication: HYPOPROTEINAEMIA
     Dosage: 250 ML, QD
     Route: 042
     Dates: start: 20070319, end: 20070322
  4. ALBUMIN (HUMAN) [Concomitant]
     Indication: HYPOPROTEINAEMIA
     Dosage: 10 G, QD
     Route: 042
     Dates: start: 20070319, end: 20070326
  5. NOVOLIN 50/50 [Concomitant]
     Indication: DIABETES MELLITUS
  6. ZELMAC [Suspect]
     Indication: CONSTIPATION
     Dosage: 6 MG, BID
     Route: 048
     Dates: start: 20070319, end: 20070407

REACTIONS (6)
  - CARDIAC FAILURE [None]
  - DIABETIC GANGRENE [None]
  - LUNG INFECTION [None]
  - PYREXIA [None]
  - SEPSIS [None]
  - STAPHYLOCOCCAL INFECTION [None]
